FAERS Safety Report 19549892 (Version 2)
Quarter: 2021Q3

REPORT INFORMATION
  Report Type: Report from Study
  Country: US (occurrence: US)
  Receive Date: 20210714
  Receipt Date: 20210803
  Transmission Date: 20211014
  Serious: Yes (Other)
  Sender: FDA-Public Use
  Company Number: US-HBP-2021US022301

PATIENT
  Sex: Male

DRUGS (1)
  1. VALCHLOR [Suspect]
     Active Substance: MECHLORETHAMINE
     Indication: CUTANEOUS T-CELL LYMPHOMA
     Dosage: UNK, NIGHTLY
     Route: 061
     Dates: start: 2021, end: 2021

REACTIONS (6)
  - Application site wound [Recovering/Resolving]
  - Wound infection [Recovering/Resolving]
  - Application site infection [Recovering/Resolving]
  - Application site irritation [Recovered/Resolved]
  - Application site erosion [Recovered/Resolved]
  - Application site haemorrhage [Unknown]
